FAERS Safety Report 10010591 (Version 1)
Quarter: 2014Q1

REPORT INFORMATION
  Report Type: Spontaneous
  Country: US (occurrence: None)
  Receive Date: 20140312
  Receipt Date: 20140312
  Transmission Date: 20141002
  Serious: Yes (Hospitalization)
  Sender: FDA-Public Use
  Company Number: None

PATIENT
  Age: 71 Year
  Sex: Female
  Weight: 68 kg

DRUGS (17)
  1. WARFARIN [Suspect]
     Indication: ATRIAL FIBRILLATION
     Dosage: PRIOR TO ADMISSION
     Route: 048
  2. ASPIRIN [Suspect]
     Indication: CEREBROVASCULAR ACCIDENT
     Dosage: PRIOR TO ADMISSION.
     Route: 048
  3. ASPIRIN [Suspect]
     Indication: MYOCARDIAL INFARCTION
     Dosage: PRIOR TO ADMISSION.
     Route: 048
  4. CALCIUM [Concomitant]
  5. OMEGA 3 [Concomitant]
  6. HYDROCODONE/ACETAMINOPHEN [Concomitant]
  7. CARVEDILOL [Concomitant]
  8. DIPHENHYDRAMINE [Concomitant]
  9. MONTELUKAST [Concomitant]
  10. LOSARTAN [Concomitant]
  11. FLUTICASONE/SALMETEROL [Concomitant]
  12. SIMVASTATIN [Concomitant]
  13. FUROSEMIDE [Concomitant]
  14. FEXOFENADINE [Concomitant]
  15. CLOPIDOGREL [Concomitant]
  16. ASCORBIC ACID [Concomitant]
  17. BIOTIN [Concomitant]

REACTIONS (8)
  - Fatigue [None]
  - Melaena [None]
  - International normalised ratio increased [None]
  - Haemoglobin decreased [None]
  - Haematocrit decreased [None]
  - Gastritis [None]
  - Oesophageal candidiasis [None]
  - Gastrointestinal haemorrhage [None]
